FAERS Safety Report 6856452-0 (Version None)
Quarter: 2010Q3

REPORT INFORMATION
  Report Type: 
  Country: None (occurrence: None)
  Receive Date: 20100716
  Receipt Date: 20100716
  Transmission Date: 20110219
  Serious: Yes (Hospitalization)
  Sender: FDA-Public Use
  Company Number: None

PATIENT
  Age: 79 Year
  Sex: Male

DRUGS (1)
  1. OFLOXACIN [Suspect]
     Dates: start: 20100517, end: 20100517

REACTIONS (1)
  - ANGIOEDEMA [None]
